FAERS Safety Report 6134384-3 (Version None)
Quarter: 2009Q1

REPORT INFORMATION
  Report Type: 
  Country: None (occurrence: None)
  Receive Date: 20090327
  Receipt Date: 20090316
  Transmission Date: 20090719
  Serious: Yes (Other)
  Sender: FDA-Public Use
  Company Number: US-JNJFOC-20090304270

PATIENT
  Sex: Female

DRUGS (1)
  1. SIMPLY SLEEP NIGHTTIME [Suspect]
     Indication: INSOMNIA
     Route: 048

REACTIONS (3)
  - ABDOMINAL PAIN UPPER [None]
  - DRUG DEPENDENCE [None]
  - PRURITUS [None]
